FAERS Safety Report 15778196 (Version 1)
Quarter: 2018Q4

REPORT INFORMATION
  Report Type: Spontaneous
  Country: JP (occurrence: JP)
  Receive Date: 20181231
  Receipt Date: 20181231
  Transmission Date: 20190205
  Serious: Yes (Death)
  Sender: FDA-Public Use
  Company Number: JP-CORDEN PHARMA LATINA S.P.A.-JP-2018COR000165

PATIENT
  Age: 9 Year
  Sex: Male

DRUGS (6)
  1. CYCLOPHOSPHAMIDE. [Suspect]
     Active Substance: CYCLOPHOSPHAMIDE
     Indication: ANAPLASTIC ASTROCYTOMA
     Dosage: UNK, 4 CYCLES
     Route: 065
  2. THIOTEPA. [Suspect]
     Active Substance: THIOTEPA
     Indication: ANAPLASTIC ASTROCYTOMA
     Dosage: UNK, 4 CYCLES
     Route: 065
  3. MELPHALAN. [Suspect]
     Active Substance: MELPHALAN
     Indication: ANAPLASTIC ASTROCYTOMA
     Dosage: UNK, 4 CYCLES
     Route: 065
  4. VINCRISTINE [Suspect]
     Active Substance: VINCRISTINE
     Indication: ANAPLASTIC ASTROCYTOMA
     Dosage: UNK, 4 CYCLES
     Route: 065
  5. ETOPOSIDE. [Suspect]
     Active Substance: ETOPOSIDE
     Indication: ANAPLASTIC ASTROCYTOMA
     Dosage: UNK, 14 CYCLES
     Route: 065
  6. CISPLATIN. [Suspect]
     Active Substance: CISPLATIN
     Indication: ANAPLASTIC ASTROCYTOMA
     Dosage: UNK, 4 CYCLES
     Route: 065

REACTIONS (2)
  - Osteosarcoma [Fatal]
  - Second primary malignancy [Fatal]
